FAERS Safety Report 8879946 (Version 2)
Quarter: 2015Q1

REPORT INFORMATION
  Report Type: Report from Study
  Country: US (occurrence: US)
  Receive Date: 20121031
  Receipt Date: 20150205
  Transmission Date: 20150721
  Serious: Yes (Other)
  Sender: FDA-Public Use
  Company Number: US-ROCHE-CID000000002133797

PATIENT
  Age: 14 Year
  Sex: Male

DRUGS (3)
  1. PROTROPIN [Suspect]
     Active Substance: SOMATREM
     Route: 058
  2. PROTROPIN [Suspect]
     Active Substance: SOMATREM
     Indication: GROWTH HORMONE DEFICIENCY
     Route: 058
  3. PROTROPIN [Suspect]
     Active Substance: SOMATREM
     Route: 058

REACTIONS (2)
  - Epiphyseal fracture [Unknown]
  - Drug ineffective [Unknown]

NARRATIVE: CASE EVENT DATE: 19921031
